FAERS Safety Report 8332472-4 (Version None)
Quarter: 2012Q2

REPORT INFORMATION
  Report Type: 
  Country: None (occurrence: None)
  Receive Date: 20120503
  Receipt Date: 20120425
  Transmission Date: 20120825
  Serious: No
  Sender: FDA-Public Use
  Company Number: US-PFIZER INC-2012102879

PATIENT
  Age: 17 Year
  Sex: Female

DRUGS (1)
  1. PRISTIQ [Suspect]
     Dosage: 25 MG, UNK
     Dates: start: 20120401

REACTIONS (3)
  - DISORIENTATION [None]
  - SLEEP DISORDER [None]
  - MIDDLE INSOMNIA [None]
